FAERS Safety Report 10380587 (Version 1)
Quarter: 2014Q3

REPORT INFORMATION
  Report Type: Spontaneous
  Country: JP (occurrence: JP)
  Receive Date: 20140813
  Receipt Date: 20140813
  Transmission Date: 20150326
  Serious: Yes (Other)
  Sender: FDA-Public Use
  Company Number: PHHY2013JP160717

PATIENT
  Age: 38 Year
  Sex: Male

DRUGS (2)
  1. NILOTINIB [Suspect]
     Active Substance: NILOTINIB
     Indication: CHRONIC MYELOID LEUKAEMIA
     Dosage: 800 MG, PER DAY
  2. GLIVEC [Suspect]
     Active Substance: IMATINIB MESYLATE
     Indication: CHRONIC MYELOID LEUKAEMIA

REACTIONS (2)
  - Second primary malignancy [Unknown]
  - Rectal cancer [Unknown]
